FAERS Safety Report 13508044 (Version 2)
Quarter: 2017Q2

REPORT INFORMATION
  Report Type: Report from Study
  Country: US (occurrence: US)
  Receive Date: 20170503
  Receipt Date: 20170613
  Transmission Date: 20170830
  Serious: Yes (Hospitalization)
  Sender: FDA-Public Use
  Company Number: US-BIOGEN-2017BI00390364

PATIENT
  Sex: Male

DRUGS (1)
  1. TYSABRI [Suspect]
     Active Substance: NATALIZUMAB
     Indication: MULTIPLE SCLEROSIS
     Route: 042
     Dates: start: 20120322

REACTIONS (7)
  - Atrial fibrillation [Unknown]
  - Cognitive disorder [Unknown]
  - Device related infection [Unknown]
  - Dermatophytosis of nail [Unknown]
  - Pain in extremity [Unknown]
  - Muscular weakness [Unknown]
  - Multiple sclerosis relapse [Unknown]
